FAERS Safety Report 20878874 (Version 1)
Quarter: 2022Q2

REPORT INFORMATION
  Report Type: Spontaneous
  Country: US (occurrence: US)
  Receive Date: 20220526
  Receipt Date: 20220526
  Transmission Date: 20220721
  Serious: Yes (Other)
  Sender: FDA-Public Use
  Company Number: US-TEVA-2022-US-2040275

PATIENT
  Sex: Female

DRUGS (1)
  1. KELNOR 1/35 [Suspect]
     Active Substance: ETHINYL ESTRADIOL\ETHYNODIOL DIACETATE
     Indication: Hereditary haemorrhagic telangiectasia
     Dosage: DAILY
     Route: 065

REACTIONS (4)
  - Haemorrhage [Unknown]
  - Expired product administered [Unknown]
  - Therapeutic response unexpected [Unknown]
  - Depressed mood [Unknown]
